FAERS Safety Report 9096039 (Version 2)
Quarter: 2013Q1

REPORT INFORMATION
  Report Type: Spontaneous
  Country: AU (occurrence: AU)
  Receive Date: 20130207
  Receipt Date: 20130325
  Transmission Date: 20140127
  Serious: Yes (Other)
  Sender: FDA-Public Use
  Company Number: AU-ROCHE-1183776

PATIENT
  Age: 68 Year
  Sex: Female

DRUGS (7)
  1. RITUXIMAB [Suspect]
     Indication: DIFFUSE LARGE B-CELL LYMPHOMA
     Route: 065
     Dates: start: 201008
  2. CYCLOPHOSPHAMIDE [Concomitant]
     Route: 065
     Dates: start: 201008
  3. VINCRISTINE [Concomitant]
     Route: 065
     Dates: start: 201008
  4. DEXAMETHASONE [Concomitant]
     Route: 065
     Dates: start: 201008
  5. METHOTREXATE [Concomitant]
     Route: 065
     Dates: start: 201008
  6. CYTARABINE [Concomitant]
     Route: 065
     Dates: start: 201008
  7. DOXORUBICIN [Concomitant]
     Route: 065
     Dates: start: 201008

REACTIONS (8)
  - Bronchopulmonary aspergillosis [Unknown]
  - Nodule [Recovering/Resolving]
  - Lung neoplasm [Unknown]
  - Pulmonary embolism [Unknown]
  - Bacterial sepsis [Unknown]
  - Neutropenia [Unknown]
  - Dyspnoea [Unknown]
  - Blood lactate dehydrogenase increased [Unknown]
